FAERS Safety Report 6954924-1 (Version None)
Quarter: 2010Q3

REPORT INFORMATION
  Report Type: 
  Country: None (occurrence: None)
  Receive Date: 20100830
  Receipt Date: 20100824
  Transmission Date: 20110219
  Serious: Yes (Death, Hospitalization)
  Sender: FDA-Public Use
  Company Number: PHEH2009US10811

PATIENT
  Sex: Male
  Weight: 73.48 kg

DRUGS (30)
  1. EXJADE [Suspect]
     Indication: MYELODYSPLASTIC SYNDROME
     Dosage: 500 MG, DAILY
     Route: 048
     Dates: start: 20081114
  2. EXJADE [Suspect]
     Indication: IRON OVERLOAD
     Dosage: 20 MG/KG DAILY EVERY DAY ON AN EMPTY STOMACH. DISSOLVE TABLETS IN APPLEJUICE, WATER OR ORANGE JUICE
     Route: 048
     Dates: end: 20100220
  3. COUMADIN [Concomitant]
     Dosage: 4 MG, QD
     Route: 048
     Dates: start: 20091211
  4. COMPAZINE [Concomitant]
     Indication: NAUSEA
     Dosage: 10 MG, Q6H PRN
     Route: 048
     Dates: start: 20090501
  5. CALCIUM CARBONATE W/VITAMIN D NOS [Concomitant]
     Dosage: TWO 600MG/400MG TABS,BID
     Route: 048
     Dates: start: 20071130
  6. MAGNESIUM [Concomitant]
     Dosage: 400 MG, QD
     Route: 048
     Dates: start: 20080812
  7. ALLOPURINOL [Concomitant]
     Dosage: 100 MG, QD
     Route: 048
     Dates: start: 20080812
  8. ALLOPURINOL [Concomitant]
     Dosage: 100 MG, TAKE 1 TAB BY MOUTH DAILY
     Route: 048
     Dates: start: 20091224
  9. DOCUSATE SODIUM [Concomitant]
     Dosage: 250 MG, QHS PRN
     Route: 048
     Dates: start: 20090407
  10. DEXAMETHASONE [Concomitant]
     Dosage: 4 MG, BID
     Route: 048
     Dates: start: 20081229
  11. ONDANSETRON HYDROCHLORIDE [Concomitant]
     Dosage: 8 MG, PRIOR TO CHEMO TREATMENT
     Route: 048
     Dates: start: 20081229
  12. CLOTRIMAZOLE [Concomitant]
     Dosage: 10 MG, UNK
     Dates: start: 20081114
  13. METAMUCIL-2 [Concomitant]
     Dosage: 1 PACKET DAILY
     Dates: start: 20080812
  14. FLONASE [Concomitant]
     Dosage: 50 MCG, BID
     Route: 045
     Dates: start: 20080812
  15. TYLENOL-500 [Concomitant]
     Dosage: 500 MG, PRN
     Dates: start: 20080812
  16. ROCALTROL [Concomitant]
     Dosage: 0.25 MCG, QD
     Route: 048
     Dates: start: 20080812
  17. PLENDIL [Concomitant]
     Dosage: 5 MG, QD
     Route: 048
     Dates: start: 20080812
  18. PREDNISONE [Concomitant]
     Dosage: 1 MG, TAKE WITH 5 MG PILL, TAKE 4 PILLS WITH THE MONTH OF DEC, TAKE 3 PILLS DAILY THE MONTH OF JAN
     Dates: start: 20100125
  19. ALTACE [Concomitant]
     Dosage: 2.5 MG, BID
     Route: 048
     Dates: start: 20061204
  20. CHROMAGEN [Concomitant]
     Dosage: UNK
     Route: 048
     Dates: start: 20061013
  21. PRILOSEC [Concomitant]
     Dosage: 20 MG, QD
     Route: 048
     Dates: start: 20061013
  22. LOPRESSOR HCT [Concomitant]
     Dosage: 50MG/25MG, QD
     Route: 048
     Dates: start: 20061013
  23. ZOLOFT [Concomitant]
     Dosage: HALF 50 MG TABLET, QD
     Route: 048
     Dates: start: 20061013
  24. ADVIL LIQUI-GELS [Concomitant]
     Dosage: 200 MG, UNK
     Dates: start: 20061013
  25. OXYBUTYNIN CHLORIDE [Concomitant]
     Dosage: 5 MG, BID
     Route: 048
     Dates: start: 20100203
  26. METOPROLOL TARTRATE [Concomitant]
     Dosage: 50 MG, TID
     Route: 048
     Dates: start: 20090221
  27. AMLODIPINE BESYLATE [Concomitant]
     Dosage: 2.5 MG, QD
     Route: 048
     Dates: start: 20091211
  28. GLIPIZIDE [Concomitant]
     Dosage: 2.5 MG, UNK
     Route: 048
     Dates: start: 20091211
  29. FUROSEMIDE [Concomitant]
     Dosage: 20 MG, QD
     Route: 048
     Dates: start: 20091201
  30. LIPITOR [Concomitant]
     Dosage: 10 MG, QD
     Route: 048

REACTIONS (2)
  - DEATH [None]
  - DYSSTASIA [None]
